FAERS Safety Report 10449831 (Version 2)
Quarter: 2014Q4

REPORT INFORMATION
  Report Type: Spontaneous
  Country: US (occurrence: US)
  Receive Date: 20140912
  Receipt Date: 20141211
  Transmission Date: 20150528
  Serious: Yes (Hospitalization)
  Sender: FDA-Public Use
  Company Number: US-INCYTE CORPORATION-2014IN002102

PATIENT
  Age: 91 Year
  Sex: Male

DRUGS (1)
  1. JAKAFI [Suspect]
     Active Substance: RUXOLITINIB
     Indication: MYELOFIBROSIS
     Dosage: 20 MG, BID
     Route: 048
     Dates: start: 20140617

REACTIONS (3)
  - Fatigue [Recovering/Resolving]
  - Contusion [Not Recovered/Not Resolved]
  - Packed red blood cell transfusion [Unknown]

NARRATIVE: CASE EVENT DATE: 20140722
